FAERS Safety Report 9344238 (Version 5)
Quarter: 2013Q3

REPORT INFORMATION
  Report Type: Report from Study
  Country: BE (occurrence: BE)
  Receive Date: 20130612
  Receipt Date: 20130909
  Transmission Date: 20140515
  Serious: Yes (Death, Hospitalization)
  Sender: FDA-Public Use
  Company Number: BE-CELGENEUS-013-C4047-13032688

PATIENT
  Age: 60 Year
  Sex: Male
  Weight: 78.5 kg

DRUGS (39)
  1. PREGABALIN [Concomitant]
     Dosage: 150 MILLIGRAM
     Route: 048
     Dates: end: 20130610
  2. MACROGOL [Concomitant]
     Indication: CONSTIPATION
     Dosage: 1 BAG OF POWDER
     Route: 048
     Dates: end: 20130610
  3. TRAMADOL [Concomitant]
     Indication: PAIN
     Route: 048
     Dates: end: 20130610
  4. PARACETAMOL [Concomitant]
     Indication: ARTHRALGIA
     Route: 048
     Dates: start: 201303
  5. PARACETAMOL [Concomitant]
     Indication: PAIN
     Route: 048
     Dates: end: 20130610
  6. ENOXAPARIN [Concomitant]
     Indication: THROMBOSIS PROPHYLAXIS
     Dosage: 40 MILLIGRAM
     Route: 058
     Dates: start: 20130326, end: 20130610
  7. DOXYCYCLINE [Concomitant]
     Indication: GINGIVAL INFLAMMATION
     Dosage: 100 MILLIGRAM
     Route: 048
     Dates: start: 20130215, end: 20130610
  8. SELOKEN [Concomitant]
     Indication: HYPERTENSION
     Dosage: 100 MILLIGRAM
     Route: 048
     Dates: start: 20130301
  9. SELOKEN [Concomitant]
     Dosage: 50 MILLIGRAM
     Route: 048
     Dates: start: 20130301
  10. SELOKEN [Concomitant]
     Dosage: 100 MILLIGRAM
     Route: 048
     Dates: end: 20130301
  11. PLATELETS [Concomitant]
     Indication: PLATELET COUNT DECREASED
     Route: 065
  12. ASAFLOW [Concomitant]
     Indication: THROMBOSIS PROPHYLAXIS
     Dosage: 80 MILLIGRAM
     Route: 041
     Dates: start: 20091110
  13. STEOVIT D3 [Concomitant]
     Indication: HYPOVITAMINOSIS
     Dosage: 1000 MILLIGRAM
     Route: 041
     Dates: start: 20110113
  14. DESLORATADINE [Concomitant]
     Indication: RHINITIS
     Dosage: 10 MILLIGRAM
     Route: 041
     Dates: start: 20120829
  15. DESLORATADINE [Concomitant]
     Indication: PROPHYLAXIS
  16. CLOZAN [Concomitant]
     Indication: INSOMNIA
     Route: 041
     Dates: start: 19960819
  17. CLOZAN [Concomitant]
     Indication: PROPHYLAXIS
  18. EPREX [Concomitant]
     Indication: ANAEMIA PROPHYLAXIS
     Route: 041
     Dates: start: 20121017
  19. ATROVENT [Concomitant]
     Indication: BRONCHOPNEUMONIA
     Route: 065
     Dates: start: 20121220
  20. PARACODINE [Concomitant]
     Indication: UPPER RESPIRATORY TRACT INFECTION
     Route: 065
     Dates: start: 20121218
  21. VIBROCIL [Concomitant]
     Indication: UPPER RESPIRATORY TRACT INFECTION
     Route: 065
     Dates: start: 20121218
  22. AMLODIPINE [Concomitant]
     Indication: HYPERTENSION
     Dosage: 5 MILLIGRAM
     Route: 065
     Dates: end: 20130315
  23. G-CSF [Concomitant]
     Indication: SUPPORTIVE CARE
     Route: 041
     Dates: start: 201303, end: 201303
  24. CC-4047 [Suspect]
     Indication: PLASMA CELL MYELOMA
     Dosage: 4 MILLIGRAM
     Route: 048
     Dates: start: 20130201, end: 20130221
  25. CC-4047 [Suspect]
     Dosage: 3 MILLIGRAM
     Route: 048
     Dates: start: 20130308, end: 20130328
  26. CC-4047 [Suspect]
     Dosage: 4 MILLIGRAM
     Route: 048
     Dates: start: 20130329
  27. CC-4047 [Suspect]
     Dosage: 4 MILLIGRAM
     Route: 048
     Dates: start: 20130426, end: 20130511
  28. CC-4047 [Suspect]
     Dosage: 4 MILLIGRAM
     Route: 048
     Dates: start: 20130524, end: 20130531
  29. CC-4047 [Suspect]
     Dosage: 4 MILLIGRAM
     Route: 048
     Dates: start: 20120803
  30. DEXAMETHASONE [Suspect]
     Indication: PLASMA CELL MYELOMA
     Route: 065
     Dates: start: 20130201, end: 20130222
  31. DEXAMETHASONE [Suspect]
     Route: 065
     Dates: start: 20130308, end: 20130404
  32. DEXAMETHASONE [Suspect]
     Route: 065
     Dates: start: 20130329
  33. DEXAMETHASONE [Suspect]
     Route: 065
     Dates: start: 20130426, end: 20130511
  34. DEXAMETHASONE [Suspect]
     Route: 065
     Dates: start: 20130524, end: 20130531
  35. DEXAMETHASONE [Suspect]
     Route: 065
     Dates: start: 20120803
  36. BUPRENORFINE [Concomitant]
     Indication: PAIN
     Route: 062
     Dates: end: 20130610
  37. PANTOPRAZOL [Concomitant]
     Indication: PROPHYLAXIS AGAINST GASTROINTESTINAL ULCER
     Dosage: 40 MILLIGRAM
     Route: 048
     Dates: start: 20120810
  38. PANTOPRAZOL [Concomitant]
     Dosage: 80 MILLIGRAM
     Route: 048
     Dates: end: 20130610
  39. PREGABALIN [Concomitant]
     Indication: NEURALGIA
     Dosage: 75 MILLIGRAM
     Route: 048

REACTIONS (9)
  - Febrile neutropenia [Unknown]
  - Pneumonia [Recovered/Resolved]
  - Cardiac failure [Fatal]
  - Cardiac failure [Recovering/Resolving]
  - Atrial fibrillation [Recovered/Resolved]
  - Cardiac failure [Recovering/Resolving]
  - Pulmonary oedema [Not Recovered/Not Resolved]
  - Atrial fibrillation [Recovering/Resolving]
  - Renal failure [Not Recovered/Not Resolved]
